FAERS Safety Report 4450640-9 (Version None)
Quarter: 2004Q3

REPORT INFORMATION
  Report Type: 
  Country: None (occurrence: None)
  Receive Date: 20040913
  Receipt Date: 20040604
  Transmission Date: 20050211
  Serious: No
  Sender: FDA-Public Use
  Company Number: 2004-BP-04438BP(0)

PATIENT
  Age: 77 Year
  Sex: Male

DRUGS (5)
  1. SPIRIVA [Suspect]
     Indication: CHRONIC OBSTRUCTIVE AIRWAYS DISEASE
     Dosage: 18 MCG(18 MCG, QD), IH
     Route: 055
     Dates: start: 20040301, end: 20040401
  2. FLOVENT [Concomitant]
  3. COMBIVENT [Concomitant]
  4. SEREVENT (SALMETEROL XINOFOATE) [Concomitant]
  5. ALBUTEROL [Concomitant]

REACTIONS (1)
  - DRUG INEFFECTIVE [None]
